FAERS Safety Report 26070350 (Version 1)
Quarter: 2025Q4

REPORT INFORMATION
  Report Type: Spontaneous
  Country: EU (occurrence: EU)
  Receive Date: 20251120
  Receipt Date: 20251120
  Transmission Date: 20260119
  Serious: Yes (Life-Threatening)
  Sender: PFIZER
  Company Number: None

PATIENT
  Age: 32 Year
  Sex: Female
  Weight: 63 kg

DRUGS (1)
  1. CYTOTEC [Suspect]
     Active Substance: MISOPROSTOL
     Indication: Hysteroscopy
     Dosage: ONE DOSE, SINGLE
     Route: 048
     Dates: start: 20170314, end: 20170314

REACTIONS (2)
  - Off label use [Unknown]
  - Anaphylactic shock [Recovered/Resolved]

NARRATIVE: CASE EVENT DATE: 20170314
